FAERS Safety Report 8562079-5 (Version None)
Quarter: 2012Q3

REPORT INFORMATION
  Report Type: 
  Country: None (occurrence: None)
  Receive Date: 20120802
  Receipt Date: 20120709
  Transmission Date: 20120928
  Serious: Yes (Hospitalization)
  Sender: FDA-Public Use
  Company Number: US-AMGEN-USASP2012042329

PATIENT
  Age: 56 Year
  Sex: Female

DRUGS (1)
  1. ENBREL [Suspect]
     Indication: RHEUMATOID ARTHRITIS
     Dosage: 25 MG, 2 TIMES/WK
     Dates: start: 20041001

REACTIONS (6)
  - DIVERTICULITIS [None]
  - INFLUENZA [None]
  - DIVERTICULUM [None]
  - GASTROENTERITIS VIRAL [None]
  - RHEUMATOID ARTHRITIS [None]
  - NASOPHARYNGITIS [None]
